FAERS Safety Report 5740756-9 (Version None)
Quarter: 2008Q2

REPORT INFORMATION
  Report Type: 
  Country: None (occurrence: None)
  Receive Date: 20080515
  Receipt Date: 20080306
  Transmission Date: 20081010
  Serious: No
  Sender: FDA-Public Use
  Company Number: WAES 0803USA01055

PATIENT
  Sex: Male

DRUGS (1)
  1. TAB ISENTRESS [Suspect]

REACTIONS (1)
  - RASH [None]
